FAERS Safety Report 7013795-8 (Version None)
Quarter: 2010Q3

REPORT INFORMATION
  Report Type: 
  Country: None (occurrence: None)
  Receive Date: 20100924
  Receipt Date: 20100910
  Transmission Date: 20110219
  Serious: Yes (Life-Threatening, Hospitalization, Disabling, Other)
  Sender: FDA-Public Use
  Company Number: NO-SANOFI-AVENTIS-2010SA050360

PATIENT
  Age: 75 Year
  Sex: Male

DRUGS (18)
  1. CLOPIDOGREL BISULFATE [Suspect]
     Indication: MYOCARDIAL INFARCTION
     Route: 048
     Dates: start: 20100810
  2. INVESTIGATIONAL DRUG [Concomitant]
     Indication: PRODUCT USED FOR UNKNOWN INDICATION
     Route: 065
     Dates: start: 20100127
  3. INVESTIGATIONAL DRUG [Concomitant]
     Route: 065
     Dates: start: 20100216
  4. INVESTIGATIONAL DRUG [Concomitant]
     Route: 065
     Dates: start: 20100714, end: 20100808
  5. INVESTIGATIONAL DRUG [Concomitant]
     Route: 065
     Dates: start: 20100714
  6. INVESTIGATIONAL DRUG [Concomitant]
     Route: 065
     Dates: start: 20100423
  7. INVESTIGATIONAL DRUG [Concomitant]
     Route: 065
     Dates: start: 20100423
  8. INVESTIGATIONAL DRUG [Concomitant]
     Route: 065
     Dates: start: 20100423
  9. INVESTIGATIONAL DRUG [Concomitant]
     Route: 065
     Dates: start: 20100331
  10. INVESTIGATIONAL DRUG [Concomitant]
     Route: 065
     Dates: start: 20100309
  11. GLUCOPHAGE [Concomitant]
     Indication: DIABETES MELLITUS
     Route: 048
     Dates: end: 20100808
  12. ALLOPURINOL [Concomitant]
     Route: 048
  13. OMACOR [Concomitant]
     Route: 048
  14. SIMVASTATIN [Concomitant]
     Indication: HYPERCHOLESTEROLAEMIA
     Route: 048
     Dates: end: 20100808
  15. DIGITOXIN [Concomitant]
     Indication: ATRIAL FIBRILLATION
     Route: 048
  16. SOTALOL [Concomitant]
     Indication: ATRIAL FIBRILLATION
     Route: 048
  17. ALBYL-E [Concomitant]
     Indication: THROMBOSIS PROPHYLAXIS
     Route: 048
  18. DIURAL [Concomitant]
     Indication: HYPERTENSION
     Route: 048

REACTIONS (3)
  - ACUTE MYOCARDIAL INFARCTION [None]
  - AORTIC ARTERIOSCLEROSIS [None]
  - DISABILITY [None]
